FAERS Safety Report 20664940 (Version 1)
Quarter: 2022Q2

REPORT INFORMATION
  Report Type: Spontaneous
  Country: CA (occurrence: CA)
  Receive Date: 20220401
  Receipt Date: 20220401
  Transmission Date: 20220721
  Serious: Yes (Life-Threatening, Other)
  Sender: FDA-Public Use
  Company Number: CA-MYLANLABS-2022M1023705

PATIENT
  Age: 16 Month
  Sex: Male

DRUGS (2)
  1. EPIPEN JR [Suspect]
     Active Substance: EPINEPHRINE
     Indication: Anaphylactic reaction
     Dosage: UNK
  2. EPIPEN JR [Suspect]
     Active Substance: EPINEPHRINE
     Indication: Hypersensitivity

REACTIONS (4)
  - Device failure [Unknown]
  - Injury associated with device [Unknown]
  - Injection site laceration [Unknown]
  - Needle issue [Unknown]
